FAERS Safety Report 6105818-5 (Version None)
Quarter: 2009Q1

REPORT INFORMATION
  Report Type: 
  Country: None (occurrence: None)
  Receive Date: 20090306
  Receipt Date: 20090303
  Transmission Date: 20090719
  Serious: Yes (Death, Hospitalization)
  Sender: FDA-Public Use
  Company Number: US-ABBOTT-09P-163-0560343-00

PATIENT
  Sex: Female
  Weight: 55 kg

DRUGS (15)
  1. ZEMPLAR [Suspect]
     Indication: HYPERPARATHYROIDISM
     Dosage: GIVEN AT DIALYSIS
     Dates: start: 20070604
  2. ZEMPLAR [Suspect]
     Indication: RENAL FAILURE CHRONIC
  3. ASPIRIN [Concomitant]
     Indication: DRUG USE FOR UNKNOWN INDICATION
     Route: 048
  4. LABETALOL HCL [Concomitant]
     Indication: HYPERTENSION
     Route: 048
  5. LASIX [Concomitant]
     Indication: RENAL DISORDER
     Route: 048
  6. NIFEDIPINE [Concomitant]
     Indication: HYPERTENSION
     Route: 048
  7. PHOSLO [Concomitant]
     Indication: BLOOD PHOSPHORUS INCREASED
     Dosage: THREE TABS TID W/ MEALS
     Route: 048
  8. PROTONIX [Concomitant]
     Indication: GASTROOESOPHAGEAL REFLUX DISEASE
     Route: 048
  9. LIPITOR [Concomitant]
     Indication: BLOOD CHOLESTEROL INCREASED
     Route: 048
  10. FLUOXETINE [Concomitant]
     Indication: DRUG USE FOR UNKNOWN INDICATION
     Route: 048
  11. CLONIDINE [Concomitant]
     Indication: HYPERTENSION
     Route: 048
  12. HYDRALAZINE HCL [Concomitant]
     Indication: HYPERTENSION
     Dosage: 10 MG X 2 TABLETS THREE TIMES A DAY
     Route: 048
  13. LANTIS INSULIN [Concomitant]
     Indication: DIABETES MELLITUS
     Route: 058
  14. REGULAR INSULIN [Concomitant]
     Indication: DIABETES MELLITUS
     Dosage: 5UNIT WITH EVERY MEAL
     Route: 058
  15. REGLAN [Concomitant]
     Indication: GASTROOESOPHAGEAL REFLUX DISEASE
     Route: 048

REACTIONS (2)
  - ACUTE MYOCARDIAL INFARCTION [None]
  - FAILURE TO THRIVE [None]
